FAERS Safety Report 4350374-5 (Version None)
Quarter: 2004Q2

REPORT INFORMATION
  Report Type: 
  Country: None (occurrence: None)
  Receive Date: 20040430
  Receipt Date: 20030528
  Transmission Date: 20050107
  Serious: No
  Sender: FDA-Public Use
  Company Number: US-BRISTOL-MYERS SQUIBB COMPANY-12287272

PATIENT
  Age: 66 Year
  Sex: Female
  Weight: 77 kg

DRUGS (3)
  1. LAC-HYDRIN [Suspect]
     Indication: PRURITUS
     Dates: start: 20030318
  2. MAXZIDE [Suspect]
     Indication: OEDEMA
     Dosage: 75MG/50MG
     Route: 048
     Dates: start: 20021115, end: 20030422
  3. TENORMIN [Suspect]
     Indication: PALPITATIONS
     Dates: start: 20021115

REACTIONS (3)
  - OEDEMA PERIPHERAL [None]
  - RASH MACULAR [None]
  - RASH SCALY [None]
